FAERS Safety Report 12594868 (Version 3)
Quarter: 2016Q3

REPORT INFORMATION
  Report Type: Spontaneous
  Country: FR (occurrence: FR)
  Receive Date: 20160726
  Receipt Date: 20160915
  Transmission Date: 20161109
  Serious: Yes (Hospitalization)
  Sender: FDA-Public Use
  Company Number: FR-PFIZER INC-2016349348

PATIENT
  Age: 61 Year
  Sex: Female

DRUGS (7)
  1. AMLOR [Suspect]
     Active Substance: AMLODIPINE BESYLATE
     Dosage: 50 MG, 1X/DAY
     Route: 048
     Dates: start: 20160609, end: 20160609
  2. SERESTA [Suspect]
     Active Substance: OXAZEPAM
     Dosage: 50 MG, DAILY
  3. SERESTA [Suspect]
     Active Substance: OXAZEPAM
     Dosage: 1000 MG, 1X/DAY
     Route: 048
     Dates: start: 20160609, end: 20160609
  4. MOPRAL /00661201/ [Concomitant]
     Active Substance: OMEPRAZOLE SODIUM
     Dosage: 20 MG, DAILY
  5. AMLOR [Suspect]
     Active Substance: AMLODIPINE BESYLATE
     Dosage: 5 MG, DAILY
  6. TERCIAN /00759301/ [Concomitant]
     Active Substance: CYAMEMAZINE
     Dosage: 25 MG, DAILY
  7. MIANSERIN HYDROCHLORIDE [Concomitant]
     Active Substance: MIANSERIN HYDROCHLORIDE
     Dosage: 30 MG, DAILY

REACTIONS (10)
  - Hypoxia [Unknown]
  - Hypotension [Recovered/Resolved]
  - Intentional overdose [Unknown]
  - Hypothermia [Recovered/Resolved]
  - Toxicity to various agents [Unknown]
  - Respiratory distress [Unknown]
  - Cerebrovascular accident [Not Recovered/Not Resolved]
  - Miosis [Recovered/Resolved]
  - Somnolence [Recovering/Resolving]
  - Vomiting [Recovered/Resolved]

NARRATIVE: CASE EVENT DATE: 20160609
